FAERS Safety Report 8169034-8 (Version None)
Quarter: 2012Q1

REPORT INFORMATION
  Report Type: 
  Country: None (occurrence: None)
  Receive Date: 20120227
  Receipt Date: 20120222
  Transmission Date: 20120608
  Serious: No
  Sender: FDA-Public Use
  Company Number: US-PFIZER INC-2012048490

PATIENT
  Sex: Female

DRUGS (3)
  1. GLEEVEC [Interacting]
     Dosage: UNK
  2. LIPITOR [Suspect]
     Dosage: UNK
  3. VITAMIN D [Interacting]
     Dosage: UNK

REACTIONS (2)
  - NAUSEA [None]
  - DRUG INTERACTION [None]
